FAERS Safety Report 5313699-2 (Version None)
Quarter: 2007Q2

REPORT INFORMATION
  Report Type: 
  Country: None (occurrence: None)
  Receive Date: 20070501
  Receipt Date: 20070418
  Transmission Date: 20071010
  Serious: Yes (Other)
  Sender: FDA-Public Use
  Company Number: 2007GB00538

PATIENT
  Age: 78 Year
  Sex: Male
  Weight: 76 kg

DRUGS (2)
  1. GOSERELIN [Suspect]
     Indication: PROSTATE CANCER
     Route: 058
     Dates: start: 20070101
  2. 5-AZACYTIDINE [Concomitant]
     Indication: MYELODYSPLASTIC SYNDROME
     Dosage: 150 MG DAILY FOR 7 DAYS EVERY 6 WEEKS
     Route: 058
     Dates: start: 20040101

REACTIONS (1)
  - PANCYTOPENIA [None]
